FAERS Safety Report 10404414 (Version 1)
Quarter: 2014Q1

REPORT INFORMATION
  Report Type: Spontaneous
  Country: US (occurrence: None)
  Receive Date: 20140306
  Receipt Date: 20140306
  Transmission Date: 20141002
  Serious: Yes (Hospitalization)
  Sender: FDA-Public Use
  Company Number: 163-21880-12111429

PATIENT
  Age: 55 Year
  Sex: Female

DRUGS (14)
  1. REVLIMID (LENALIDOMIDE) (10 MILLIGRAM, CAPSULES) [Suspect]
     Indication: CHRONIC LYMPHOCYTIC LEUKAEMIA
     Dosage: 28 IN 28D
     Dates: start: 20121012, end: 20121031
  2. FATUMUMAB  (OFATUMUMAB) [Concomitant]
  3. SOLU-MEDROL (METHYLPREDNISOLONE) [Concomitant]
  4. BENADRYL (DIPHENHYDRAMINE) [Concomitant]
  5. PEPCID (FAMOTIDINE) [Concomitant]
  6. PLATELET (DIPYRIDAMOLE) [Concomitant]
  7. ACYCLOVIR (ACICLOVIR) (ACICLOVIR) [Concomitant]
  8. ALLOPURINOL (ALLOPURINOL) [Concomitant]
  9. SENOKOT (SENNA FRUIT) [Concomitant]
  10. GABAPENTIN (GABAPENTIN) [Concomitant]
  11. ONDANSETRON (ONDANSETRON) [Concomitant]
  12. PREDNISONE (PREDNISONE) [Concomitant]
  13. BACTRIM (BACTRIM) [Concomitant]
  14. FLUCONAZOLE (FLUCONAZOLE() [Concomitant]

REACTIONS (2)
  - Tumour flare [None]
  - Thrombocytopenia [None]
